FAERS Safety Report 6024558-4 (Version None)
Quarter: 2008Q4

REPORT INFORMATION
  Report Type: 
  Country: None (occurrence: None)
  Receive Date: 20081231
  Receipt Date: 20081120
  Transmission Date: 20090506
  Serious: No
  Sender: FDA-Public Use
  Company Number: US-BRISTOL-MYERS SQUIBB COMPANY-14384176

PATIENT
  Age: 67 Year
  Sex: Female

DRUGS (11)
  1. ORENCIA [Suspect]
     Indication: RHEUMATOID ARTHRITIS
     Dosage: 4 DOSES GIVEN
     Route: 042
     Dates: start: 20080718, end: 20081023
  2. METHOTREXATE [Concomitant]
     Route: 048
  3. NAPROSYN [Concomitant]
     Route: 048
  4. ZOCOR [Concomitant]
     Route: 048
  5. SYNTHROID [Concomitant]
     Route: 048
  6. CARDIZEM CD [Concomitant]
     Route: 048
  7. FLONASE [Concomitant]
  8. RESTASIS [Concomitant]
  9. PREVACID [Concomitant]
     Dosage: 1 DOSAGE FORM = 30 (UNIT NOT SPECIFIED)
     Route: 048
  10. LISINOPRIL [Concomitant]
     Route: 048
  11. PREDNISOLONE [Concomitant]
     Route: 048

REACTIONS (1)
  - PSORIASIS [None]
